FAERS Safety Report 6716006-3 (Version None)
Quarter: 2010Q2

REPORT INFORMATION
  Report Type: 
  Country: None (occurrence: None)
  Receive Date: 20100426
  Receipt Date: 20091224
  Transmission Date: 20101027
  Serious: Yes (Other)
  Sender: FDA-Public Use
  Company Number: 2009BI030142

PATIENT
  Age: 36 Year
  Sex: Female

DRUGS (3)
  1. TYSABRI [Suspect]
     Indication: MULTIPLE SCLEROSIS
     Dosage: 300 MG;QM;IV
     Route: 042
     Dates: start: 20090821, end: 20090918
  2. AVONEX [Concomitant]
  3. COPAXONE [Concomitant]

REACTIONS (4)
  - ANAPHYLACTIC REACTION [None]
  - CENTRAL NERVOUS SYSTEM LESION [None]
  - HYPERSENSITIVITY [None]
  - MULTIPLE SCLEROSIS [None]
